FAERS Safety Report 5259749-3 (Version None)
Quarter: 2007Q1

REPORT INFORMATION
  Report Type: 
  Country: None (occurrence: None)
  Receive Date: 20070307
  Receipt Date: 20070301
  Transmission Date: 20070707
  Serious: Yes (Death, Hospitalization)
  Sender: FDA-Public Use
  Company Number: A-US2007-14340

PATIENT
  Age: 61 Year
  Sex: Female
  Weight: 47.6 kg

DRUGS (13)
  1. VENTAVIS [Suspect]
     Indication: PULMONARY HYPERTENSION
     Dosage: 5 UG, 6 X DAY, RESPIRATORY
     Route: 055
     Dates: start: 20051207, end: 20070208
  2. VIAGRA [Concomitant]
  3. ADVAIR (SALMETEROL XINAFOATE, FLUTICASONE PROPIONATE) [Concomitant]
  4. DIGOXIN [Concomitant]
  5. ALPRAZOLAM [Concomitant]
  6. COUMADIN [Concomitant]
  7. FUROSEMIDE [Concomitant]
  8. POTASSIUM CHLORIDE [Concomitant]
  9. ZANTAC [Concomitant]
  10. SPIRIVA [Concomitant]
  11. SUDAFED 12 HOUR [Concomitant]
  12. AFRIN (SORBITOL, BENZALKONIUM CHLORID,E PHENYLMERCURIC ACETATE, AMINOA [Concomitant]
  13. TYLENOL [Concomitant]

REACTIONS (6)
  - BLOOD GLUCOSE DECREASED [None]
  - EAR PAIN [None]
  - LOSS OF CONSCIOUSNESS [None]
  - LYMPHADENOPATHY [None]
  - OSTEITIS [None]
  - SEPSIS [None]
